FAERS Safety Report 20548458 (Version 10)
Quarter: 2022Q4

REPORT INFORMATION
  Report Type: Report from Study
  Country: CA (occurrence: CA)
  Receive Date: 20220303
  Receipt Date: 20221027
  Transmission Date: 20230113
  Serious: Yes (Other)
  Sender: FDA-Public Use
  Company Number: CA-OTSUKA-2021_033738

PATIENT
  Sex: Female

DRUGS (4)
  1. CEDAZURIDINE\DECITABINE [Suspect]
     Active Substance: CEDAZURIDINE\DECITABINE
     Indication: Myelodysplastic syndrome
     Dosage: (35 MG OF DECITABINE AND 100 MG OF CEDAZURIDINE),(DAILY DAYS 1 THROUGH 5 Q28 DAYS)
     Route: 065
     Dates: start: 20210923
  2. CEDAZURIDINE\DECITABINE [Suspect]
     Active Substance: CEDAZURIDINE\DECITABINE
     Dosage: (135 MG DAILY FOR 3 DAYS Q6 WEEKS)
     Route: 065
     Dates: start: 20211025
  3. CEDAZURIDINE\DECITABINE [Suspect]
     Active Substance: CEDAZURIDINE\DECITABINE
     Dosage: (135 MG DAILY FOR 3 DAYS Q5 WEEKS)
     Route: 065
  4. LENALIDOMIDE [Suspect]
     Active Substance: LENALIDOMIDE
     Indication: Product used for unknown indication
     Dosage: UNK
     Route: 065

REACTIONS (11)
  - Blood product transfusion dependent [Unknown]
  - Haemoglobin decreased [Unknown]
  - Eastern Cooperative Oncology Group performance status worsened [Unknown]
  - Malaise [Unknown]
  - General physical health deterioration [Unknown]
  - Cystitis [Recovering/Resolving]
  - Rash [Recovered/Resolved]
  - Dyspnoea [Unknown]
  - Dermatitis allergic [Unknown]
  - Product use issue [Unknown]
  - Treatment delayed [Unknown]
